FAERS Safety Report 7096117-6 (Version None)
Quarter: 2010Q4

REPORT INFORMATION
  Report Type: 
  Country: None (occurrence: None)
  Receive Date: 20101111
  Receipt Date: 20101106
  Transmission Date: 20110411
  Serious: Yes (Hospitalization)
  Sender: FDA-Public Use
  Company Number: CN-ROCHE-733129

PATIENT
  Age: 61 Year
  Sex: Male

DRUGS (2)
  1. PEGASYS [Suspect]
     Indication: HEPATITIS C
     Route: 058
     Dates: start: 20100608, end: 20100825
  2. RIBAVARIN [Concomitant]
     Indication: HEPATITIS C
     Dates: start: 20100608, end: 20100901

REACTIONS (3)
  - GASTROINTESTINAL OEDEMA [None]
  - HEPATITIS C [None]
  - MOOD ALTERED [None]
